FAERS Safety Report 7361145-X (Version None)
Quarter: 2011Q1

REPORT INFORMATION
  Report Type: 
  Country: None (occurrence: None)
  Receive Date: 20110318
  Receipt Date: 20110308
  Transmission Date: 20110831
  Serious: Yes (Hospitalization)
  Sender: FDA-Public Use
  Company Number: CH-ELI_LILLY_AND_COMPANY-CH201103004067

PATIENT
  Sex: Male
  Weight: 63 kg

DRUGS (2)
  1. ASPIRIN [Concomitant]
  2. EFFIENT [Suspect]

REACTIONS (4)
  - HAEMOTHORAX [None]
  - HAEMORRHAGE [None]
  - TRAUMATIC LUNG INJURY [None]
  - MULTIPLE INJURIES [None]
